FAERS Safety Report 10580958 (Version 2)
Quarter: 2014Q4

REPORT INFORMATION
  Report Type: Spontaneous
  Country: BE (occurrence: None)
  Receive Date: 20141110
  Receipt Date: 20141117
  Transmission Date: 20150529
  Serious: Yes (Life-Threatening, Hospitalization, Other)
  Sender: FDA-Public Use
  Company Number: ADR-2014-02067

PATIENT
  Sex: Male

DRUGS (3)
  1. LIORESAL [Suspect]
     Active Substance: BACLOFEN
     Dates: start: 20140923
  2. COMPOUNDED BACLOFEN INTRATHECAL [Suspect]
     Active Substance: BACLOFEN
     Dates: end: 20140923
  3. MORPHINE INTRATHECAL [Suspect]
     Active Substance: MORPHINE

REACTIONS (8)
  - Pyrexia [None]
  - Septic shock [None]
  - Device computer issue [None]
  - Malaise [None]
  - Underdose [None]
  - Device failure [None]
  - Withdrawal syndrome [None]
  - Muscle spasticity [None]
